FAERS Safety Report 9041580 (Version 1)
Quarter: 2013Q1

REPORT INFORMATION
  Report Type: Report from Study
  Country: US (occurrence: US)
  Receive Date: 20130129
  Receipt Date: 20130129
  Transmission Date: 20140127
  Serious: No
  Sender: FDA-Public Use
  Company Number: US-ABBOTT-12P-163-0902182-00

PATIENT
  Sex: Female
  Weight: 57.2 kg

DRUGS (5)
  1. HUMIRA 40 MG/0.8 ML PEN [Suspect]
     Indication: ANKYLOSING SPONDYLITIS
     Dates: start: 201106
  2. FOLIC ACID [Concomitant]
     Indication: ANKYLOSING SPONDYLITIS
  3. CELEBREX [Concomitant]
     Indication: INFLAMMATION
  4. METHOTREXATE [Concomitant]
     Indication: ANKYLOSING SPONDYLITIS
  5. RESTASIS [Concomitant]
     Indication: DRY EYE

REACTIONS (2)
  - Injection site pain [Not Recovered/Not Resolved]
  - Injection site pruritus [Not Recovered/Not Resolved]
